FAERS Safety Report 13157241 (Version 1)
Quarter: 2017Q1

REPORT INFORMATION
  Report Type: Spontaneous
  Country: IN (occurrence: IN)
  Receive Date: 20170127
  Receipt Date: 20170127
  Transmission Date: 20170428
  Serious: Yes (Death, Life-Threatening, Hospitalization, Other)
  Sender: FDA-Public Use
  Company Number: IN-MACLEODS PHARMACEUTICALS US LTD-MAC2017004260

PATIENT

DRUGS (2)
  1. SILDENAFIL. [Suspect]
     Active Substance: SILDENAFIL
     Indication: PULMONARY HYPERTENSION
     Dosage: UNK
     Route: 065
  2. BOSENTAN. [Suspect]
     Active Substance: BOSENTAN
     Indication: PULMONARY HYPERTENSION
     Dosage: UNK
     Route: 065

REACTIONS (11)
  - Cardio-respiratory arrest [Fatal]
  - Condition aggravated [Fatal]
  - Orthopnoea [Fatal]
  - Hypotension [Fatal]
  - Hypoxia [Fatal]
  - Dyspnoea [Fatal]
  - Pleural effusion [Unknown]
  - Tachycardia [Fatal]
  - Pulmonary veno-occlusive disease [Fatal]
  - Pulmonary capillary haemangiomatosis [Fatal]
  - Tachypnoea [Fatal]
